FAERS Safety Report 16886697 (Version 2)
Quarter: 2019Q4

REPORT INFORMATION
  Report Type: Spontaneous
  Country: US (occurrence: US)
  Receive Date: 20191004
  Receipt Date: 20191220
  Transmission Date: 20200122
  Serious: Yes (Other)
  Sender: FDA-Public Use
  Company Number: US-PFIZER INC-2019430267

PATIENT
  Age: 26 Year
  Sex: Female

DRUGS (13)
  1. CLOMIPHENE CITRATE. [Concomitant]
     Active Substance: CLOMIPHENE CITRATE
     Dosage: 3 DF, DAILY FOR 5 DAYS
     Route: 048
     Dates: start: 20170801
  2. AYGESTIN [Concomitant]
     Active Substance: NORETHINDRONE ACETATE
     Dosage: 2 DF, DAILY, FOR 14 DAYS
     Route: 048
     Dates: start: 20160520, end: 20160824
  3. CLOMIPHENE CITRATE. [Concomitant]
     Active Substance: CLOMIPHENE CITRATE
     Dosage: 2 DF, DAILY FOR 5 DAYS
     Route: 048
     Dates: start: 20170703
  4. CLOMIPHENE CITRATE. [Concomitant]
     Active Substance: CLOMIPHENE CITRATE
     Dosage: 4 DF, DAILY FOR 5 DAYS
     Route: 048
     Dates: start: 20170907, end: 20190430
  5. DEPO-PROVERA [Suspect]
     Active Substance: MEDROXYPROGESTERONE ACETATE
     Indication: CONTRACEPTION
     Dosage: UNK
     Route: 030
     Dates: start: 20110316, end: 20160824
  6. AYGESTIN [Concomitant]
     Active Substance: NORETHINDRONE ACETATE
     Dosage: 5 DF, DAILY FOR 1 DAY
     Route: 048
     Dates: start: 20190516
  7. LOTRISONE [Concomitant]
     Active Substance: BETAMETHASONE DIPROPIONATE\CLOTRIMAZOLE
     Dosage: UNK (1-0.05%, APPLY TO AFFECTED AREAS EVERY 3 TO 4 HOURS)
     Route: 061
     Dates: start: 20140428
  8. DEPO-PROVERA [Suspect]
     Active Substance: MEDROXYPROGESTERONE ACETATE
     Dosage: UNK
     Dates: start: 20120511, end: 20161118
  9. BACTRIM DS [Concomitant]
     Active Substance: SULFAMETHOXAZOLE\TRIMETHOPRIM
     Dosage: UNK, 800-160 MG TABLET (EVERY 12 HOURS FOR 10 DAYS)
     Route: 048
     Dates: start: 20140623, end: 20150819
  10. FLAGYL [Concomitant]
     Active Substance: METRONIDAZOLE\METRONIDAZOLE HYDROCHLORIDE
     Dosage: 1 DF, 2X/DAY FOR 7 DAYS
     Route: 048
     Dates: start: 20140505
  11. DEPO-PROVERA [Suspect]
     Active Substance: MEDROXYPROGESTERONE ACETATE
     Dosage: 150 MG, EVERY 3 MONTHS FOR 90 DAYS
     Route: 030
     Dates: start: 20130405
  12. CLOMIPHENE CITRATE. [Concomitant]
     Active Substance: CLOMIPHENE CITRATE
     Dosage: 1 DF, 1X/DAY FOR 5 DAYS
     Route: 048
     Dates: start: 20170608
  13. ANAPROX DS [Concomitant]
     Active Substance: NAPROXEN SODIUM
     Dosage: 1 DF (EVERY 12 HOURS FOR 7 DAYS)
     Route: 048
     Dates: start: 20140623, end: 20150819

REACTIONS (8)
  - Fatigue [Unknown]
  - Dizziness [Unknown]
  - Headache [Unknown]
  - Infertility [Unknown]
  - Emotional distress [Unknown]
  - Life expectancy shortened [Unknown]
  - Cardiac flutter [Unknown]
  - Menorrhagia [Not Recovered/Not Resolved]

NARRATIVE: CASE EVENT DATE: 20160315
